FAERS Safety Report 6441928-0 (Version None)
Quarter: 2009Q4

REPORT INFORMATION
  Report Type: 
  Country: None (occurrence: None)
  Receive Date: 20091112
  Receipt Date: 20091029
  Transmission Date: 20100525
  Serious: Yes (Other)
  Sender: FDA-Public Use
  Company Number: TPA2009A03499

PATIENT
  Sex: 0

DRUGS (2)
  1. ULORIC [Suspect]
     Indication: GOUT
     Dosage: PER ORAL
     Route: 048
  2. THEOPHYLLINE [Suspect]
     Indication: CHRONIC OBSTRUCTIVE PULMONARY DISEASE

REACTIONS (4)
  - DEHYDRATION [None]
  - DIZZINESS [None]
  - NAUSEA [None]
  - SYNCOPE [None]
